FAERS Safety Report 6519319-3 (Version None)
Quarter: 2009Q4

REPORT INFORMATION
  Report Type: 
  Country: None (occurrence: None)
  Receive Date: 20091228
  Receipt Date: 20081017
  Transmission Date: 20100525
  Serious: Yes (Death, Other)
  Sender: FDA-Public Use
  Company Number: US-BAYER-200823390GPV

PATIENT

DRUGS (1)
  1. SORAFENIB [Suspect]
     Indication: THYROID CANCER METASTATIC
     Route: 048

REACTIONS (8)
  - DIARRHOEA [None]
  - FATIGUE [None]
  - HEPATIC FAILURE [None]
  - HYPERTENSION [None]
  - MUSCULOSKELETAL PAIN [None]
  - PALMAR-PLANTAR ERYTHRODYSAESTHESIA SYNDROME [None]
  - RASH [None]
  - WEIGHT DECREASED [None]
